FAERS Safety Report 5625859-1 (Version None)
Quarter: 2008Q1

REPORT INFORMATION
  Report Type: 
  Country: None (occurrence: None)
  Receive Date: 20080212
  Receipt Date: 20080212
  Transmission Date: 20080703
  Serious: Yes (Hospitalization)
  Sender: FDA-Public Use
  Company Number: None

PATIENT
  Age: 16 Year
  Sex: Female
  Weight: 48 kg

DRUGS (2)
  1. HEPARIN [Suspect]
     Indication: DIALYSIS
     Dosage: 5,000 UNIT/20 ML NS ONCE HEMODIALYSI
     Dates: start: 20080206, end: 20080206
  2. HEPARIN [Suspect]
     Indication: RENAL FAILURE CHRONIC
     Dosage: 5,000 UNIT/20 ML NS ONCE HEMODIALYSI
     Dates: start: 20080206, end: 20080206

REACTIONS (6)
  - BURNING SENSATION [None]
  - HEART RATE INCREASED [None]
  - NAUSEA [None]
  - PALPITATIONS [None]
  - SWELLING FACE [None]
  - VOMITING [None]
